FAERS Safety Report 16228461 (Version 1)
Quarter: 2019Q2

REPORT INFORMATION
  Report Type: Spontaneous
  Country: US (occurrence: US)
  Receive Date: 20190318
  Receipt Date: 20190318
  Transmission Date: 20190711
  Serious: Yes (Death, Hospitalization)
  Sender: FDA-Public Use
  Company Number: None

PATIENT
  Age: 34 Year
  Sex: Female
  Weight: 100.7 kg

DRUGS (4)
  1. DEXAMETHASONE. [Suspect]
     Active Substance: DEXAMETHASONE
     Dates: end: 20190219
  2. DAUNORUBICIN [Suspect]
     Active Substance: DAUNORUBICIN
     Dates: end: 20190214
  3. ONCASPAR [Suspect]
     Active Substance: PEGASPARGASE
     Dates: end: 20190203
  4. VINCRISTINE SULFATE. [Suspect]
     Active Substance: VINCRISTINE SULFATE
     Dates: end: 20190214

REACTIONS (9)
  - Toxic encephalopathy [None]
  - Meningoencephalitis herpetic [None]
  - Human herpesvirus 6 infection [None]
  - Sepsis [None]
  - Aphasia [None]
  - Stomatococcal infection [None]
  - Neutropenia [None]
  - Intracranial venous sinus thrombosis [None]
  - Cardio-respiratory arrest [None]

NARRATIVE: CASE EVENT DATE: 20190220
